FAERS Safety Report 8323201-9 (Version None)
Quarter: 2012Q2

REPORT INFORMATION
  Report Type: 
  Country: None (occurrence: None)
  Receive Date: 20120430
  Receipt Date: 20120420
  Transmission Date: 20120825
  Serious: Yes (Other)
  Sender: FDA-Public Use
  Company Number: PHHY2012CH034285

PATIENT
  Sex: Female

DRUGS (9)
  1. PREDNISONE [Concomitant]
     Dosage: UNK UKN, UNK
  2. METHYLPREDNISOLONE [Concomitant]
     Indication: RENAL TRANSPLANT
     Dosage: 500 MG, BID
     Route: 042
  3. PREDNISONE [Concomitant]
     Dosage: 60 MG, DAILY
     Route: 048
  4. CYCLOSPORINE [Suspect]
     Dosage: 100 MG, BID
     Route: 048
  5. PREDNISONE [Concomitant]
     Dosage: 5 MG, DAILY
     Route: 048
  6. PREDNISONE [Concomitant]
     Indication: RENAL TRANSPLANT
     Dosage: 30 MG, DAILY
     Route: 048
  7. CYCLOSPORINE [Suspect]
     Indication: RENAL TRANSPLANT
     Dosage: 200 MG, BID
     Route: 048
  8. CYCLOSPORINE [Suspect]
     Dosage: UNK UKN, UNK
     Route: 048
  9. MYCOPHENOLATE MOFETIL [Concomitant]
     Indication: RENAL TRANSPLANT
     Dosage: 600 MG/M2, BID
     Route: 048

REACTIONS (17)
  - EYELID PTOSIS [None]
  - BURKITT'S LYMPHOMA [None]
  - EPSTEIN-BARR VIRUS INFECTION [None]
  - PLEOCYTOSIS [None]
  - HYPERREFLEXIA [None]
  - AGEUSIA [None]
  - POST TRANSPLANT LYMPHOPROLIFERATIVE DISORDER [None]
  - TRIGEMINAL NERVE DISORDER [None]
  - PLEURAL FIBROSIS [None]
  - CHEST PAIN [None]
  - VITH NERVE PARALYSIS [None]
  - IIIRD NERVE PARALYSIS [None]
  - DIPLOPIA [None]
  - VASCULITIS [None]
  - VIITH NERVE PARALYSIS [None]
  - MYDRIASIS [None]
  - HERPES ZOSTER [None]
